FAERS Safety Report 17693226 (Version 7)
Quarter: 2025Q2

REPORT INFORMATION
  Report Type: Spontaneous
  Country: JP (occurrence: JP)
  Receive Date: 20200422
  Receipt Date: 20250416
  Transmission Date: 20250717
  Serious: Yes (Life-Threatening, Other)
  Sender: ALEXION PHARMACEUTICALS
  Company Number: 2020SE52959

PATIENT
  Age: 61 Year
  Weight: 44 kg

DRUGS (1)
  1. LYNPARZA [Suspect]
     Active Substance: OLAPARIB
     Indication: Ovarian cancer
     Dosage: 300 MILLIGRAM, BID

REACTIONS (6)
  - Myelodysplastic syndrome [Not Recovered/Not Resolved]
  - Renal impairment [Unknown]
  - Pulmonary mass [Unknown]
  - Inflammation [Unknown]
  - Hepatic cyst [Unknown]
  - Haemangioma [Unknown]
